FAERS Safety Report 5995111-3 (Version None)
Quarter: 2008Q4

REPORT INFORMATION
  Report Type: 
  Country: None (occurrence: None)
  Receive Date: 20081212
  Receipt Date: 20081204
  Transmission Date: 20090506
  Serious: Yes (Other)
  Sender: FDA-Public Use
  Company Number: GB-PFIZER INC-2008151616

PATIENT

DRUGS (8)
  1. AMLODIPINE BESYLATE [Suspect]
     Indication: HYPERTENSION
     Dosage: 10 MG, 1X/DAY
     Route: 048
     Dates: start: 20081107, end: 20081108
  2. BENDROFLUAZIDE [Concomitant]
     Indication: HYPERTENSION
  3. CLENIL [Concomitant]
     Indication: ASTHMA
  4. CO-DYDRAMOL [Concomitant]
     Indication: OSTEOARTHRITIS
  5. CYPROTERONE [Concomitant]
     Indication: PROSTATE CANCER
  6. SALBUTAMOL SULFATE [Concomitant]
     Indication: ASTHMA
  7. SALMETEROL [Concomitant]
     Indication: ASTHMA
  8. ZOLADEX [Concomitant]
     Indication: PROSTATE CANCER

REACTIONS (1)
  - MUSCULOSKELETAL STIFFNESS [None]
